FAERS Safety Report 5122252-5 (Version None)
Quarter: 2006Q4

REPORT INFORMATION
  Report Type: 
  Country: None (occurrence: None)
  Receive Date: 20061006
  Receipt Date: 20061002
  Transmission Date: 20070319
  Serious: Yes (Hospitalization)
  Sender: FDA-Public Use
  Company Number: SE-MERCK-0610SWE00001

PATIENT
  Age: 90 Year
  Sex: Female

DRUGS (6)
  1. FOSAMAX [Suspect]
     Indication: OSTEOPOROSIS
     Route: 048
     Dates: start: 20030101, end: 20060809
  2. CALCIUM CARBONATE AND CHOLECALCIFEROL [Concomitant]
     Route: 048
  3. CYANOCOBALAMIN [Concomitant]
     Route: 048
  4. OXYCODONE HCL [Concomitant]
     Route: 048
  5. POLYSACCHARIDE IRON COMPLEX [Concomitant]
     Route: 048
  6. [THERAPY UNSPECIFIED] [Concomitant]
     Route: 065

REACTIONS (1)
  - GASTROINTESTINAL HAEMORRHAGE [None]
